FAERS Safety Report 8053461-3 (Version None)
Quarter: 2012Q1

REPORT INFORMATION
  Report Type: 
  Country: None (occurrence: None)
  Receive Date: 20120118
  Receipt Date: 20120110
  Transmission Date: 20120608
  Serious: Yes (Other)
  Sender: FDA-Public Use
  Company Number: FI-GLAXOSMITHKLINE-B0775429A

PATIENT
  Age: 26 Year
  Sex: Female

DRUGS (1)
  1. PAZOPANIB [Suspect]
     Indication: PRODUCT USED FOR UNKNOWN INDICATION
     Route: 065
     Dates: start: 20110101, end: 20110401

REACTIONS (2)
  - PYREXIA [None]
  - HEPATIC ENZYME INCREASED [None]
